FAERS Safety Report 25029465 (Version 1)
Quarter: 2025Q1

REPORT INFORMATION
  Report Type: Report from Study
  Country: CA (occurrence: CA)
  Receive Date: 20250303
  Receipt Date: 20250303
  Transmission Date: 20250409
  Serious: Yes (Hospitalization, Other)
  Sender: SANDOZ
  Company Number: CA-SANDOZ-SDZ2024CA096053

PATIENT
  Age: 82 Year
  Sex: Female

DRUGS (2)
  1. HYRIMOZ [Suspect]
     Active Substance: ADALIMUMAB-ADAZ
     Indication: Rheumatoid arthritis
     Dosage: 40 MG, Q2W;BIWEEKLY
     Route: 058
     Dates: start: 20240926
  2. ALENDRONATE SODIUM [Concomitant]
     Active Substance: ALENDRONATE SODIUM
     Indication: Product used for unknown indication
     Dosage: 700 MG, QW,70MG (NEW MEDICATION SINCE PATIENT^S DISCHARGE FROM HOSPITAL); PATIENT JUST STARTED I
     Route: 065

REACTIONS (8)
  - Humerus fracture [Unknown]
  - Fall [Unknown]
  - Pneumonia [Recovering/Resolving]
  - Lung disorder [Unknown]
  - Immune system disorder [Unknown]
  - Respiratory tract infection [Unknown]
  - Product dose omission issue [Unknown]
  - Inappropriate schedule of product administration [Unknown]

NARRATIVE: CASE EVENT DATE: 20241210
